FAERS Safety Report 7240945-0 (Version None)
Quarter: 2011Q1

REPORT INFORMATION
  Report Type: 
  Country: None (occurrence: None)
  Receive Date: 20110120
  Receipt Date: 20110120
  Transmission Date: 20110831
  Serious: Yes (Hospitalization)
  Sender: FDA-Public Use
  Company Number: None

PATIENT
  Sex: Female
  Weight: 97.977 kg

DRUGS (1)
  1. LEVAQUIN [Suspect]
     Indication: OROPHARYNGEAL PAIN
     Dosage: 1 PILL A DAY 10 DAYS
     Dates: start: 20101213, end: 20101223

REACTIONS (15)
  - FLATULENCE [None]
  - HEART RATE IRREGULAR [None]
  - NAUSEA [None]
  - RESTLESSNESS [None]
  - CONSTIPATION [None]
  - MYALGIA [None]
  - VAGINAL DISCHARGE [None]
  - ASTHENIA [None]
  - VISUAL IMPAIRMENT [None]
  - PARAESTHESIA [None]
  - WEIGHT BEARING DIFFICULTY [None]
  - PAIN [None]
  - PYREXIA [None]
  - DIZZINESS [None]
  - HYPOAESTHESIA [None]
